FAERS Safety Report 14418575 (Version 2)
Quarter: 2018Q1

REPORT INFORMATION
  Report Type: Spontaneous
  Country: CZ (occurrence: CZ)
  Receive Date: 20180122
  Receipt Date: 20180128
  Transmission Date: 20180509
  Serious: Yes (Life-Threatening, Hospitalization, Other)
  Sender: FDA-Public Use
  Company Number: CZ-ASTRAZENECA-2018SE07621

PATIENT
  Age: 71 Year
  Sex: Male

DRUGS (6)
  1. BRILIQUE [Suspect]
     Active Substance: TICAGRELOR
     Route: 048
  2. CLOPIDOGREL [Concomitant]
     Active Substance: CLOPIDOGREL BISULFATE
  3. GODASAL [Concomitant]
     Active Substance: ASPIRIN\GLYCINE
  4. AMLODIPINE BESILATE [Concomitant]
     Active Substance: AMLODIPINE BESYLATE
  5. EZETROL [Concomitant]
     Active Substance: EZETIMIBE
  6. CONTROLOC [Concomitant]
     Active Substance: PANTOPRAZOLE SODIUM

REACTIONS (4)
  - Rash [Unknown]
  - Gastric haemorrhage [Unknown]
  - Anaemia [Unknown]
  - Intestinal haemorrhage [Unknown]
